FAERS Safety Report 18386588 (Version 1)
Quarter: 2020Q4

REPORT INFORMATION
  Report Type: Spontaneous
  Country: US (occurrence: US)
  Receive Date: 20201015
  Receipt Date: 20201015
  Transmission Date: 20210114
  Serious: Yes (Other)
  Sender: FDA-Public Use
  Company Number: US-MYLANLABS-2020M1086902

PATIENT
  Age: 30 Year
  Sex: Male

DRUGS (22)
  1. IMMUNOGLOBULIN I.V [Concomitant]
     Active Substance: HUMAN IMMUNOGLOBULIN G
     Indication: LUNG TRANSPLANT REJECTION
     Dosage: UNK
     Route: 042
     Dates: start: 201601
  2. DILTIAZEM. [Concomitant]
     Active Substance: DILTIAZEM
     Indication: PRODUCT USED FOR UNKNOWN INDICATION
     Dosage: 720 MILLIGRAM, QD
     Route: 065
  3. MULTIVITAMIN                       /07504101/ [Concomitant]
     Active Substance: VITAMINS
     Indication: PRODUCT USED FOR UNKNOWN INDICATION
     Route: 065
  4. PANCRELIPASE. [Concomitant]
     Active Substance: PANCRELIPASE
     Indication: PRODUCT USED FOR UNKNOWN INDICATION
     Route: 065
  5. TACROLIMUS. [Suspect]
     Active Substance: TACROLIMUS
     Indication: IMMUNOSUPPRESSANT DRUG THERAPY
     Dosage: 2.5 MILLIGRAM, BID
     Route: 048
     Dates: start: 2014, end: 20161108
  6. ZOLPIDEM [Concomitant]
     Active Substance: ZOLPIDEM TARTRATE
     Indication: PRODUCT USED FOR UNKNOWN INDICATION
     Dosage: 5 MILLIGRAM QHS
     Route: 065
  7. MYCOPHENOLATE MOFETIL. [Concomitant]
     Active Substance: MYCOPHENOLATE MOFETIL
     Indication: IMMUNOSUPPRESSANT DRUG THERAPY
     Dosage: UNK
     Route: 065
     Dates: start: 2014
  8. PANTOPRAZOLE [Concomitant]
     Active Substance: PANTOPRAZOLE
     Indication: PRODUCT USED FOR UNKNOWN INDICATION
     Dosage: 40 MILLIGRAM, QD
     Route: 065
  9. VORICONAZOLE. [Suspect]
     Active Substance: VORICONAZOLE
     Indication: PRODUCT USED FOR UNKNOWN INDICATION
     Dosage: 200 MILLIGRAM, BID
     Route: 065
  10. AZITHROMYCIN ANHYDROUS. [Concomitant]
     Active Substance: AZITHROMYCIN ANHYDROUS
     Indication: PRODUCT USED FOR UNKNOWN INDICATION
     Dosage: MONDAY/WEDNESDAY/FRIDAY
     Route: 065
  11. LUBIPROSTONE [Concomitant]
     Active Substance: LUBIPROSTONE
     Indication: PRODUCT USED FOR UNKNOWN INDICATION
     Dosage: 24 MICROGRAM
     Route: 065
  12. MAGNESIUM [Concomitant]
     Active Substance: MAGNESIUM
     Indication: PRODUCT USED FOR UNKNOWN INDICATION
     Dosage: 400 MILLIGRAM, QD
     Route: 065
  13. METOPROLOL TARTRATE. [Concomitant]
     Active Substance: METOPROLOL TARTRATE
     Indication: PRODUCT USED FOR UNKNOWN INDICATION
     Dosage: 12.5 MILLIGRAM, BID
     Route: 065
  14. PREDNISONE. [Concomitant]
     Active Substance: PREDNISONE
     Indication: IMMUNOSUPPRESSANT DRUG THERAPY
     Dosage: 10 MILLIGRAM, QD
     Route: 065
     Dates: start: 2014
  15. FOLIC ACID. [Concomitant]
     Active Substance: FOLIC ACID
     Indication: PRODUCT USED FOR UNKNOWN INDICATION
     Dosage: 1 MILLIGRAM, QD
     Route: 065
  16. INSULIN [Concomitant]
     Active Substance: INSULIN NOS
     Indication: PRODUCT USED FOR UNKNOWN INDICATION
     Dosage: UNK
     Route: 065
  17. IPRATROPIUM [Concomitant]
     Active Substance: IPRATROPIUM
     Indication: PRODUCT USED FOR UNKNOWN INDICATION
     Route: 065
  18. VALGANCICLOVIR. [Concomitant]
     Active Substance: VALGANCICLOVIR
     Indication: PRODUCT USED FOR UNKNOWN INDICATION
     Dosage: 450 MILLIGRAM
     Route: 065
  19. PRAVASTATIN. [Concomitant]
     Active Substance: PRAVASTATIN
     Indication: PRODUCT USED FOR UNKNOWN INDICATION
     Dosage: 10 MILLIGRAM QHS
     Route: 065
  20. BUPROPION. [Concomitant]
     Active Substance: BUPROPION
     Indication: PRODUCT USED FOR UNKNOWN INDICATION
     Dosage: 75 MILLIGRAM, BID
     Route: 065
  21. LEVALBUTEROL                       /01419301/ [Concomitant]
     Active Substance: LEVALBUTEROL
     Indication: PRODUCT USED FOR UNKNOWN INDICATION
     Route: 065
  22. GABAPENTIN. [Concomitant]
     Active Substance: GABAPENTIN
     Indication: PRODUCT USED FOR UNKNOWN INDICATION
     Dosage: THREE TIMES A DAY
     Route: 065

REACTIONS (3)
  - Overdose [Recovering/Resolving]
  - Toxic optic neuropathy [Recovering/Resolving]
  - Immunosuppressant drug level increased [Recovering/Resolving]

NARRATIVE: CASE EVENT DATE: 2016
